FAERS Safety Report 4571817-8 (Version None)
Quarter: 2005Q1

REPORT INFORMATION
  Report Type: 
  Country: None (occurrence: None)
  Receive Date: 20050202
  Receipt Date: 20050120
  Transmission Date: 20050727
  Serious: Yes (Other)
  Sender: FDA-Public Use
  Company Number: 2005014990

PATIENT
  Sex: Male

DRUGS (6)
  1. NEURONTIN [Suspect]
     Indication: CONVULSION
     Dosage: 100 MG (100 MG, 1 IN 1 D), ORAL
     Route: 048
     Dates: end: 20050110
  2. DILANTIN KAPSEAL [Suspect]
     Indication: CONVULSION
     Dosage: 300 MG (300 MG, 1 IN 1 D), ORAL
     Route: 048
     Dates: start: 19880101
  3. WATER (WATER) [Suspect]
     Indication: ILL-DEFINED DISORDER
  4. CARBAMAZEPINE [Suspect]
     Indication: CONVULSION
  5. AMITRIPTYLINE (AMITRIPTYLINE) [Concomitant]
  6. DIPHENHYDRAMINE HCL [Concomitant]

REACTIONS (19)
  - BRONCHIAL INFECTION [None]
  - BRONCHITIS CHRONIC [None]
  - CONVULSION [None]
  - DRUG INEFFECTIVE [None]
  - GASTROINTESTINAL DISORDER [None]
  - HAEMORRHOIDS [None]
  - HEPATITIS A [None]
  - HEPATITIS B [None]
  - HYPOAESTHESIA [None]
  - INFLUENZA [None]
  - INSOMNIA [None]
  - IRRITABILITY [None]
  - NEUROPATHY PERIPHERAL [None]
  - OEDEMA PERIPHERAL [None]
  - PAIN IN EXTREMITY [None]
  - PARAESTHESIA [None]
  - PERIPHERAL COLDNESS [None]
  - PNEUMONIA [None]
  - SLEEP DISORDER [None]
